FAERS Safety Report 15122284 (Version 1)
Quarter: 2018Q3

REPORT INFORMATION
  Report Type: Spontaneous
  Country: US (occurrence: US)
  Receive Date: 20180613
  Receipt Date: 20180613
  Transmission Date: 20181010
  Serious: Yes (Death)
  Sender: FDA-Public Use
  Company Number: None

PATIENT
  Age: 8 Year
  Sex: Male
  Weight: 20.5 kg

DRUGS (5)
  1. DACTINOMYCIN [Suspect]
     Active Substance: DACTINOMYCIN
     Dates: end: 20100329
  2. CYCLOPHOSPHAMIDE. [Suspect]
     Active Substance: CYCLOPHOSPHAMIDE
     Dates: end: 20100329
  3. CAMPTOSAR [Suspect]
     Active Substance: IRINOTECAN HYDROCHLORIDE
     Dates: end: 20100423
  4. MESNA. [Suspect]
     Active Substance: MESNA
     Dates: end: 20100329
  5. VINCRISTINE [Suspect]
     Active Substance: VINCRISTINE
     Dates: end: 20100426

REACTIONS (6)
  - Abdominal pain [None]
  - Malignant neoplasm progression [None]
  - Headache [None]
  - Malignant cranial nerve neoplasm [None]
  - Vomiting [None]
  - Metastases to meninges [None]

NARRATIVE: CASE EVENT DATE: 20100513
